FAERS Safety Report 25970546 (Version 1)
Quarter: 2025Q4

REPORT INFORMATION
  Report Type: Spontaneous
  Country: US (occurrence: None)
  Receive Date: 20251028
  Receipt Date: 20251028
  Transmission Date: 20260118
  Serious: Yes (Hospitalization)
  Sender: FDA-CTU
  Company Number: None

PATIENT
  Sex: Female

DRUGS (3)
  1. PULMOZYME [Suspect]
     Active Substance: DORNASE ALFA
     Indication: Cystic fibrosis
     Dosage: INHALE 2.5 ML (2.5 MG TOTAL) BY NEBULIZATIQN ONCE DAILY. AROUND 5/5 DAYS A WEEK
     Route: 055
     Dates: start: 20150421
  2. PULMOZYME SOL [Concomitant]
  3. TOBRAMYCIN [Concomitant]
     Active Substance: TOBRAMYCIN

REACTIONS (4)
  - Infective pulmonary exacerbation of cystic fibrosis [None]
  - Sleep disorder [None]
  - Loss of personal independence in daily activities [None]
  - Social problem [None]
